FAERS Safety Report 5669830-2 (Version None)
Quarter: 2008Q1

REPORT INFORMATION
  Report Type: 
  Country: None (occurrence: None)
  Receive Date: 20080314
  Receipt Date: 20080314
  Transmission Date: 20080703
  Serious: Yes (Hospitalization)
  Sender: FDA-Public Use
  Company Number: None

PATIENT
  Age: 68 Year
  Sex: Male

DRUGS (2)
  1. NIACIN [Suspect]
     Dosage: 1000MG QHS PO
     Route: 048
  2. PRAVASTATIN [Suspect]
     Dosage: PO
     Route: 048

REACTIONS (3)
  - HEPATOTOXICITY [None]
  - JAUNDICE [None]
  - PROTHROMBIN LEVEL ABNORMAL [None]
